FAERS Safety Report 18948815 (Version 1)
Quarter: 2021Q1

REPORT INFORMATION
  Report Type: Spontaneous
  Country: US (occurrence: US)
  Receive Date: 20210227
  Receipt Date: 20210227
  Transmission Date: 20210420
  Serious: No
  Sender: FDA-Public Use
  Company Number: US-ELI_LILLY_AND_COMPANY-US202102011188

PATIENT
  Age: 78 Year
  Sex: Female

DRUGS (4)
  1. METAMUCIL [Concomitant]
     Active Substance: PLANTAGO SEED
     Indication: PRODUCT USED FOR UNKNOWN INDICATION
  2. METFORMIN [Concomitant]
     Active Substance: METFORMIN HYDROCHLORIDE
     Indication: PRODUCT USED FOR UNKNOWN INDICATION
  3. TRULICITY [Suspect]
     Active Substance: DULAGLUTIDE
     Indication: DIABETES MELLITUS
     Dosage: 0.75 MG, UNKNOWN
     Route: 065
     Dates: end: 20210102
  4. ACARBOSE. [Concomitant]
     Active Substance: ACARBOSE
     Indication: PRODUCT USED FOR UNKNOWN INDICATION

REACTIONS (8)
  - Blood cholesterol abnormal [Unknown]
  - Gastrooesophageal reflux disease [Unknown]
  - Vision blurred [Unknown]
  - Blood glucose decreased [Unknown]
  - Retinal disorder [Unknown]
  - Blood pressure abnormal [Unknown]
  - Diarrhoea [Recovering/Resolving]
  - Cardiac disorder [Unknown]
